FAERS Safety Report 5896099-6 (Version None)
Quarter: 2008Q3

REPORT INFORMATION
  Report Type: 
  Country: None (occurrence: None)
  Receive Date: 20080924
  Receipt Date: 20080912
  Transmission Date: 20090109
  Serious: Yes (Other)
  Sender: FDA-Public Use
  Company Number: AU-PFIZER INC-2008077488

PATIENT
  Age: 19 Year
  Sex: Female

DRUGS (1)
  1. CABASER [Suspect]
     Indication: HORMONE THERAPY

REACTIONS (4)
  - BLINDNESS [None]
  - HYPOTHERMIA [None]
  - JOINT SWELLING [None]
  - VOMITING [None]
